FAERS Safety Report 5953594-9 (Version None)
Quarter: 2008Q4

REPORT INFORMATION
  Report Type: 
  Country: None (occurrence: None)
  Receive Date: 20081114
  Receipt Date: 20081110
  Transmission Date: 20090506
  Serious: Yes (Hospitalization)
  Sender: FDA-Public Use
  Company Number: A0756579A

PATIENT
  Age: 58 Year
  Sex: Male
  Weight: 102.3 kg

DRUGS (2)
  1. AVANDIA [Suspect]
     Dosage: 8MG PER DAY
     Route: 048
     Dates: start: 20060621, end: 20061002
  2. AVANDARYL [Suspect]
     Dosage: 8MG PER DAY
     Route: 048
     Dates: start: 20060803, end: 20060821

REACTIONS (2)
  - CARDIAC DISORDER [None]
  - MYOCARDIAL INFARCTION [None]
